FAERS Safety Report 15540567 (Version 1)
Quarter: 2018Q4

REPORT INFORMATION
  Report Type: Spontaneous
  Country: US (occurrence: US)
  Receive Date: 20181016
  Receipt Date: 20181016
  Transmission Date: 20190205
  Serious: Yes (Death, Hospitalization, Disabling, Congenital Anomaly)
  Sender: FDA-Public Use
  Company Number: None

PATIENT
  Age: 35 Year
  Sex: Female
  Weight: 84.6 kg

DRUGS (2)
  1. INHALER [Concomitant]
     Active Substance: UNSPECIFIED INGREDIENT
  2. RHOGAM [Suspect]
     Active Substance: HUMAN RHO(D) IMMUNE GLOBULIN
     Indication: RHESUS ANTIGEN NEGATIVE
     Dosage: ?          QUANTITY:1 DF DOSAGE FORM;?
     Route: 058
     Dates: start: 20110529, end: 20161010

REACTIONS (9)
  - Asthma [None]
  - Carpal tunnel syndrome [None]
  - Amnesia [None]
  - Respiratory disorder [None]
  - Stillbirth [None]
  - Pregnancy [None]
  - Depression [None]
  - Migraine [None]
  - Maternal exposure during pregnancy [None]
